FAERS Safety Report 9550110 (Version 1)
Quarter: 2013Q3

REPORT INFORMATION
  Report Type: Spontaneous
  Country: US (occurrence: US)
  Receive Date: 20130924
  Receipt Date: 20130924
  Transmission Date: 20140515
  Serious: No
  Sender: FDA-Public Use
  Company Number: US-009507513-1207USA005270

PATIENT
  Sex: Female
  Weight: 74.38 kg

DRUGS (1)
  1. IMPLANON [Suspect]
     Indication: CONTRACEPTION
     Dosage: UNK
     Dates: start: 20111206

REACTIONS (3)
  - Menstruation irregular [Unknown]
  - Amenorrhoea [Unknown]
  - Lactation disorder [Unknown]
